FAERS Safety Report 17073799 (Version 5)
Quarter: 2021Q2

REPORT INFORMATION
  Report Type: Other
  Country: JP (occurrence: JP)
  Receive Date: 20191126
  Receipt Date: 20210415
  Transmission Date: 20210716
  Serious: Yes (Hospitalization)
  Sender: FDA-Public Use
  Company Number: JP-ROCHE-2484946

PATIENT
  Age: 65 Year
  Sex: Male
  Weight: 58 kg

DRUGS (9)
  1. METHOTREXATE. [Concomitant]
     Active Substance: METHOTREXATE
     Indication: RHEUMATOID ARTHRITIS
     Dosage: DOSAGE IS UNCERTAIN.
     Route: 065
  2. ESOMEPRAZOLE. [Concomitant]
     Active Substance: ESOMEPRAZOLE MAGNESIUM
  3. PREDNISOLONE. [Concomitant]
     Active Substance: PREDNISOLONE
     Indication: RHEUMATOID ARTHRITIS
  4. CELECOXIB. [Concomitant]
     Active Substance: CELECOXIB
  5. NICORANDIL [Concomitant]
     Active Substance: NICORANDIL
  6. ISOSORBIDE MONONITRATE. [Concomitant]
     Active Substance: ISOSORBIDE MONONITRATE
  7. ROSUVASTATIN. [Concomitant]
     Active Substance: ROSUVASTATIN
  8. PRASUGREL. [Concomitant]
     Active Substance: PRASUGREL
  9. ACTEMRA [Suspect]
     Active Substance: TOCILIZUMAB
     Indication: RHEUMATOID ARTHRITIS
     Route: 058
     Dates: start: 20190904

REACTIONS (2)
  - Lupus-like syndrome [Recovering/Resolving]
  - Cardiac tamponade [Recovered/Resolved]

NARRATIVE: CASE EVENT DATE: 20191114
